FAERS Safety Report 14307851 (Version 1)
Quarter: 2017Q4

REPORT INFORMATION
  Report Type: Spontaneous
  Country: US (occurrence: US)
  Receive Date: 20171220
  Receipt Date: 20171220
  Transmission Date: 20180321
  Serious: No
  Sender: FDA-Public Use
  Company Number: US-BAYER-2017-240428

PATIENT
  Age: 74 Year
  Sex: Male
  Weight: 80 kg

DRUGS (5)
  1. FINASTERIDE. [Concomitant]
     Active Substance: FINASTERIDE
     Dosage: 17 GRAMS IN WATER DOSE
     Dates: start: 201711, end: 201712
  2. LOVASTATIN. [Concomitant]
     Active Substance: LOVASTATIN
  3. BAYER LOW DOSE [Concomitant]
     Active Substance: ASPIRIN
  4. MIRALAX [Suspect]
     Active Substance: POLYETHYLENE GLYCOL 3350
     Indication: GASTROINTESTINAL DISORDER
     Route: 048
     Dates: start: 201711, end: 20171211
  5. CARVEDILOL. [Concomitant]
     Active Substance: CARVEDILOL

REACTIONS (1)
  - Product use issue [Unknown]

NARRATIVE: CASE EVENT DATE: 201711
